FAERS Safety Report 17034199 (Version 2)
Quarter: 2019Q4

REPORT INFORMATION
  Report Type: Spontaneous
  Country: PT (occurrence: PT)
  Receive Date: 20191114
  Receipt Date: 20191119
  Transmission Date: 20200122
  Serious: Yes (Disabling)
  Sender: FDA-Public Use
  Company Number: PT-009507513-1911PRT003690

PATIENT
  Sex: Female

DRUGS (2)
  1. SINEMET [Suspect]
     Active Substance: CARBIDOPA\LEVODOPA
     Dosage: STRENGTH:25/100(UNIT:UNKNOWN), 1 TABLET AT LUNCH AND 1 TABLET AT DINNER
     Route: 048
     Dates: start: 2015
  2. SINEMET [Suspect]
     Active Substance: CARBIDOPA\LEVODOPA
     Dosage: 1 TABLET AT 19:30H
     Route: 048

REACTIONS (6)
  - Pain in extremity [Recovered/Resolved]
  - Dizziness [Recovered/Resolved]
  - Burning sensation [Recovered/Resolved]
  - Product packaging quantity issue [Unknown]
  - Gait inability [Recovered/Resolved]
  - Malaise [Recovered/Resolved]
